FAERS Safety Report 9413379 (Version 1)
Quarter: 2013Q3

REPORT INFORMATION
  Report Type: Spontaneous
  Country: MX (occurrence: None)
  Receive Date: 20130709
  Receipt Date: 20130709
  Transmission Date: 20140515
  Serious: Yes (Other)
  Sender: FDA-Public Use
  Company Number: 09-AUR-09943

PATIENT
  Age: 17 Year
  Sex: Male

DRUGS (1)
  1. CEFALEXIN (CEFALEXIN) [Suspect]
     Indication: PRODUCT USED FOR UNKNOWN INDICATION

REACTIONS (3)
  - Acute generalised exanthematous pustulosis [None]
  - Pruritus [None]
  - Face oedema [None]
